FAERS Safety Report 6135888-X (Version None)
Quarter: 2009Q1

REPORT INFORMATION
  Report Type: 
  Country: None (occurrence: None)
  Receive Date: 20090327
  Receipt Date: 20080520
  Transmission Date: 20090719
  Serious: Yes (Death, Hospitalization, Disabling)
  Sender: FDA-Public Use
  Company Number: US-MERCK-0802USA06243

PATIENT
  Age: 15 Year
  Sex: Male
  Weight: 71 kg

DRUGS (8)
  1. ZOLINZA [Suspect]
     Indication: T-CELL LYMPHOMA
     Route: 048
     Dates: start: 20070204, end: 20080307
  2. ALEMTUZUMAB [Concomitant]
     Indication: T-CELL LYMPHOMA
     Route: 058
     Dates: start: 20080204, end: 20080307
  3. BORTEZOMIB [Concomitant]
     Indication: T-CELL LYMPHOMA
     Route: 041
     Dates: start: 20080204, end: 20080214
  4. MEPERIDINE HYDROCHLORIDE [Concomitant]
     Route: 065
  5. BACTRIM [Concomitant]
     Route: 065
  6. VORICONAZOLE [Concomitant]
     Route: 065
  7. ACETAMINOPHEN [Concomitant]
     Route: 065
  8. NEURONTIN [Concomitant]
     Route: 065

REACTIONS (5)
  - MUCORMYCOSIS [None]
  - NEURALGIA [None]
  - NEUROPATHY PERIPHERAL [None]
  - SOMNOLENCE [None]
  - T-CELL LYMPHOMA RECURRENT [None]
